FAERS Safety Report 4735263-6 (Version None)
Quarter: 2005Q3

REPORT INFORMATION
  Report Type: 
  Country: None (occurrence: None)
  Receive Date: 20050802
  Receipt Date: 20050719
  Transmission Date: 20060218
  Serious: Yes (Hospitalization, Other)
  Sender: FDA-Public Use
  Company Number: US_0505117696

PATIENT
  Age: 42 Year
  Sex: Male
  Weight: 109 kg

DRUGS (6)
  1. ZYPREXA [Suspect]
     Indication: BIPOLAR DISORDER
     Dosage: 225 MG
     Dates: start: 20030201, end: 20040701
  2. RISPERDAL [Concomitant]
  3. VENLAFAXINE [Concomitant]
  4. METAGLIP [Concomitant]
  5. GLUCOVANCE [Concomitant]
  6. METFORMIN [Concomitant]

REACTIONS (8)
  - BLOOD CHOLESTEROL INCREASED [None]
  - BLOOD TRIGLYCERIDES INCREASED [None]
  - DIABETES MELLITUS [None]
  - DYSKINESIA [None]
  - HEPATIC FUNCTION ABNORMAL [None]
  - HYPERTENSION [None]
  - MUSCLE TWITCHING [None]
  - OBESITY [None]
